FAERS Safety Report 9206863 (Version 2)
Quarter: 2013Q4

REPORT INFORMATION
  Report Type: Spontaneous
  Country: US (occurrence: US)
  Receive Date: 20130403
  Receipt Date: 20131111
  Transmission Date: 20140711
  Serious: Yes (Hospitalization, Other)
  Sender: FDA-Public Use
  Company Number: US-BAYER-2013-041497

PATIENT
  Age: 19 Year
  Sex: Female

DRUGS (6)
  1. OCELLA [Suspect]
     Indication: CONTRACEPTION
     Dosage: UNK
     Dates: start: 201008
  2. OCELLA [Suspect]
     Indication: MENSTRUAL CYCLE MANAGEMENT
  3. SULFAMETHOXAZOLE/TRIMETHOPRIM [Concomitant]
  4. ONDANSETRON [Concomitant]
  5. MORPHINE [Concomitant]
  6. TORADOL [Concomitant]

REACTIONS (5)
  - Cholecystectomy [None]
  - Cholecystitis chronic [None]
  - Injury [None]
  - Pain [None]
  - Pain [None]
